FAERS Safety Report 4667534-6 (Version None)
Quarter: 2005Q2

REPORT INFORMATION
  Report Type: 
  Country: None (occurrence: None)
  Receive Date: 20050520
  Receipt Date: 20050509
  Transmission Date: 20051028
  Serious: Yes (Hospitalization)
  Sender: FDA-Public Use
  Company Number: FR-JNJFOC-20050203812

PATIENT
  Sex: Female
  Weight: 59 kg

DRUGS (11)
  1. REMINYL [Suspect]
     Route: 049
  2. REMINYL [Suspect]
     Indication: DRUG USE FOR UNKNOWN INDICATION
     Route: 049
  3. MONICOR [Concomitant]
  4. EFFEXOR [Concomitant]
  5. DIGOXIN [Concomitant]
  6. CORDARONE [Concomitant]
  7. ALLOPURINOL [Concomitant]
  8. NUCTALON [Concomitant]
  9. KALEORID [Concomitant]
  10. TIAPRIDAL [Concomitant]
  11. LASILIX [Concomitant]

REACTIONS (1)
  - PULMONARY OEDEMA [None]
